FAERS Safety Report 18045776 (Version 1)
Quarter: 2020Q3

REPORT INFORMATION
  Report Type: Spontaneous
  Country: CL (occurrence: US)
  Receive Date: 20200720
  Receipt Date: 20200720
  Transmission Date: 20201103
  Serious: Yes (Other)
  Sender: FDA-Public Use
  Company Number: CL-INSUD PHARMA-2007US00173

PATIENT

DRUGS (1)
  1. NUVESSA [Suspect]
     Active Substance: METRONIDAZOLE
     Indication: PRODUCT USED FOR UNKNOWN INDICATION
     Dosage: UNK
     Route: 065

REACTIONS (12)
  - Vertigo [Recovered/Resolved]
  - Dysarthria [Recovered/Resolved]
  - Dysmetria [Recovered/Resolved]
  - Cerebellar syndrome [Recovered/Resolved]
  - Paraesthesia [Recovered/Resolved]
  - Dysstasia [Recovered/Resolved]
  - Dysdiadochokinesis [Recovered/Resolved]
  - Cerebellar ataxia [Recovered/Resolved]
  - Disorientation [Recovered/Resolved]
  - Pain [Recovered/Resolved]
  - Neurotoxicity [Recovered/Resolved]
  - Gait disturbance [Recovered/Resolved]
